FAERS Safety Report 4513663-7 (Version None)
Quarter: 2004Q4

REPORT INFORMATION
  Report Type: 
  Country: None (occurrence: None)
  Receive Date: 20041130
  Receipt Date: 20040820
  Transmission Date: 20050328
  Serious: No
  Sender: FDA-Public Use
  Company Number: US-GLAXOSMITHKLINE-A0522916A

PATIENT
  Age: 58 Year
  Sex: Female
  Weight: 63.6 kg

DRUGS (4)
  1. WELLBUTRIN XL [Suspect]
     Indication: DEPRESSION
     Dosage: 150MG PER DAY
     Route: 048
  2. VIOXX [Concomitant]
  3. ACTIVELLA [Concomitant]
  4. EFFEXOR [Concomitant]

REACTIONS (2)
  - HEADACHE [None]
  - NAUSEA [None]
